FAERS Safety Report 14750893 (Version 1)
Quarter: 2018Q2

REPORT INFORMATION
  Report Type: Spontaneous
  Country: FR (occurrence: FR)
  Receive Date: 20180412
  Receipt Date: 20180412
  Transmission Date: 20180711
  Serious: Yes (Other)
  Sender: FDA-Public Use
  Company Number: FR-BRISTOL-MYERS SQUIBB COMPANY-BMS-2018-032277

PATIENT
  Age: 51 Year
  Sex: Female
  Weight: 67 kg

DRUGS (1)
  1. OPDIVO [Suspect]
     Active Substance: NIVOLUMAB
     Indication: LUNG NEOPLASM
     Dosage: 200 MG, AT FREQUENCY OF 1 CYCLICAL
     Route: 042
     Dates: start: 20170110

REACTIONS (3)
  - Malignant neoplasm progression [Recovered/Resolved]
  - Cyst [Recovered/Resolved]
  - Lichenoid keratosis [Not Recovered/Not Resolved]

NARRATIVE: CASE EVENT DATE: 20180211
